FAERS Safety Report 7912064-9 (Version None)
Quarter: 2011Q4

REPORT INFORMATION
  Report Type: 
  Country: None (occurrence: None)
  Receive Date: 20111114
  Receipt Date: 20111101
  Transmission Date: 20120403
  Serious: Yes (Hospitalization)
  Sender: FDA-Public Use
  Company Number: US-SANOFI-AVENTIS-2011SA073252

PATIENT
  Age: 61 Year
  Sex: Male

DRUGS (4)
  1. LENALIDOMIDE [Suspect]
     Indication: PROSTATE CANCER METASTATIC
     Dosage: DOSE: QD ON 1-14 (25 MG).
     Route: 048
     Dates: start: 20110419
  2. DOCETAXEL [Suspect]
     Indication: PROSTATE CANCER METASTATIC
     Dosage: DOSE: OVER 60 MINUTES ON DAY 1 (75 MG/M2).
     Route: 042
     Dates: start: 20110419
  3. PREDNISONE [Suspect]
     Indication: PROSTATE CANCER METASTATIC
     Route: 048
     Dates: start: 20110419
  4. BEVACIZUMAB [Suspect]
     Indication: PROSTATE CANCER METASTATIC
     Dosage: DOSE: OVER 30 TO 90 MINUTES ON DAY 1 (15 MG/KG).
     Route: 042
     Dates: start: 20110419, end: 20110711

REACTIONS (1)
  - HYPOXIA [None]
